FAERS Safety Report 23622155 (Version 2)
Quarter: 2024Q2

REPORT INFORMATION
  Report Type: Spontaneous
  Country: US (occurrence: US)
  Receive Date: 20240312
  Receipt Date: 20240403
  Transmission Date: 20240715
  Serious: Yes (Other)
  Sender: FDA-Public Use
  Company Number: US-002147023-NVSC2024US049668

PATIENT
  Age: 65 Year
  Sex: Female
  Weight: 100 kg

DRUGS (3)
  1. LUTATHERA [Suspect]
     Active Substance: LUTETIUM OXODOTREOTIDE LU-177
     Indication: Gastroenteropancreatic neuroendocrine tumour disease
     Dosage: 200 MCI (EVERY 8 WEEKS)
     Route: 042
     Dates: start: 20211201, end: 20220701
  2. LUTATHERA [Suspect]
     Active Substance: LUTETIUM OXODOTREOTIDE LU-177
     Dosage: 200 MCI (98 WEEKS)
     Route: 065
     Dates: start: 20211209, end: 20220715
  3. SANDOSTATIN [Concomitant]
     Active Substance: OCTREOTIDE ACETATE
     Indication: Product used for unknown indication
     Dosage: UNK (94 WEEKS)
     Route: 030

REACTIONS (3)
  - Myelosuppression [Unknown]
  - Myelodysplastic syndrome [Unknown]
  - Haematological infection [Not Recovered/Not Resolved]

NARRATIVE: CASE EVENT DATE: 20240108
